FAERS Safety Report 9107966 (Version 1)
Quarter: 2013Q1

REPORT INFORMATION
  Report Type: Report from Study
  Country: IT (occurrence: IT)
  Receive Date: 20130221
  Receipt Date: 20130221
  Transmission Date: 20140127
  Serious: Yes (Hospitalization)
  Sender: FDA-Public Use
  Company Number: IT-VERTEX PHARMACEUTICALS INC.-2013-002417

PATIENT
  Age: 62 Year
  Sex: Male
  Weight: 7 kg

DRUGS (3)
  1. VX-950 (TELAPREVIR) [Suspect]
     Indication: HEPATITIS C
     Dosage: 750 MG, TID
     Route: 048
     Dates: start: 20130129, end: 20130212
  2. Z-RIBAVIRIN [Suspect]
  3. Z-PEGYLATED INTERFERON-2A [Suspect]
     Dosage: UNK UNK, TID

REACTIONS (3)
  - Jaundice [Unknown]
  - Fatigue [Unknown]
  - Cholestasis [Unknown]
